FAERS Safety Report 8594087-2 (Version None)
Quarter: 2012Q3

REPORT INFORMATION
  Report Type: 
  Country: None (occurrence: None)
  Receive Date: 20120814
  Receipt Date: 20120808
  Transmission Date: 20120928
  Serious: Yes (Other)
  Sender: FDA-Public Use
  Company Number: FR-GILEAD-2012-0059552

PATIENT
  Sex: Male

DRUGS (4)
  1. TRUVADA [Suspect]
     Indication: HIV INFECTION CDC CATEGORY A1
     Dosage: 1 DF, QD
     Route: 048
     Dates: start: 20120412, end: 20120509
  2. NORVIR [Concomitant]
     Indication: HIV INFECTION CDC CATEGORY A1
     Dosage: 1 DF, QD
     Route: 048
     Dates: start: 20120412
  3. ESCITALOPRAM [Suspect]
     Indication: DEPRESSION
     Dosage: 1 DF, QD
     Route: 048
     Dates: start: 20120401
  4. PREZISTA [Suspect]
     Indication: HIV INFECTION CDC CATEGORY A1
     Dosage: 300 MG, QD
     Route: 048
     Dates: start: 20120412, end: 20120423

REACTIONS (2)
  - RASH [None]
  - PRURITUS [None]
